FAERS Safety Report 17369205 (Version 2)
Quarter: 2020Q1

REPORT INFORMATION
  Report Type: Spontaneous
  Country: GB (occurrence: GB)
  Receive Date: 20200204
  Receipt Date: 20200205
  Transmission Date: 20200409
  Serious: Yes (Death, Hospitalization, Other)
  Sender: FDA-Public Use
  Company Number: GB-GILEAD-2019-0415165

PATIENT
  Age: 51 Year
  Sex: Male

DRUGS (3)
  1. YESCARTA [Suspect]
     Active Substance: AXICABTAGENE CILOLEUCEL
     Indication: DIFFUSE LARGE B-CELL LYMPHOMA
     Dosage: UNK
     Route: 065
     Dates: start: 20190528, end: 20190528
  2. MORPHINE [Concomitant]
     Active Substance: MORPHINE
  3. METHYLPREDNISOLONE. [Concomitant]
     Active Substance: METHYLPREDNISOLONE

REACTIONS (2)
  - Diffuse large B-cell lymphoma [Fatal]
  - Cytokine release syndrome [Recovered/Resolved]
